FAERS Safety Report 8359178-X (Version None)
Quarter: 2012Q2

REPORT INFORMATION
  Report Type: 
  Country: None (occurrence: None)
  Receive Date: 20120511
  Receipt Date: 20120509
  Transmission Date: 20120825
  Serious: Yes (Other)
  Sender: FDA-Public Use
  Company Number: ADR-2012-00584

PATIENT
  Sex: Female

DRUGS (2)
  1. BACLOFEN [Suspect]
     Indication: CEREBRAL PALSY
  2. BACLOFEN [Suspect]
     Indication: MUSCLE SPASTICITY

REACTIONS (6)
  - SCOLIOSIS [None]
  - LUNG DISORDER [None]
  - PUMP RESERVOIR ISSUE [None]
  - NO THERAPEUTIC RESPONSE [None]
  - MUSCULOSKELETAL DISORDER [None]
  - GENERAL PHYSICAL HEALTH DETERIORATION [None]
